FAERS Safety Report 5185589-X (Version None)
Quarter: 2006Q4

REPORT INFORMATION
  Report Type: 
  Country: None (occurrence: None)
  Receive Date: 20061220
  Receipt Date: 20060810
  Transmission Date: 20070319
  Serious: No
  Sender: FDA-Public Use
  Company Number: US-GLAXOSMITHKLINE-A0616289A

PATIENT
  Age: 39 Year
  Sex: Female

DRUGS (1)
  1. NICODERM CQ [Suspect]

REACTIONS (14)
  - ABNORMAL DREAMS [None]
  - ANXIETY [None]
  - CRYING [None]
  - DIARRHOEA [None]
  - FEELING ABNORMAL [None]
  - INTENTIONAL DRUG MISUSE [None]
  - MALAISE [None]
  - MENTAL DISORDER [None]
  - NERVOUSNESS [None]
  - POOR QUALITY SLEEP [None]
  - SLEEP DISORDER [None]
  - STRESS [None]
  - THINKING ABNORMAL [None]
  - VOMITING [None]
